FAERS Safety Report 18648278 (Version 1)
Quarter: 2020Q4

REPORT INFORMATION
  Report Type: Spontaneous
  Country: US (occurrence: US)
  Receive Date: 20201221
  Receipt Date: 20201221
  Transmission Date: 20210114
  Serious: Yes (Disabling, Other)
  Sender: FDA-Public Use
  Company Number: None

PATIENT
  Age: 20 Year
  Sex: Male
  Weight: 135 kg

DRUGS (7)
  1. REMICADE [Suspect]
     Active Substance: INFLIXIMAB
     Indication: HIDRADENITIS
     Dosage: ?          OTHER FREQUENCY:4 TIMES SINCE JUNE;?
     Route: 042
     Dates: start: 20200604
  2. MELATONIN [Concomitant]
     Active Substance: MELATONIN
  3. CLINDAMYCIN. [Concomitant]
     Active Substance: CLINDAMYCIN
  4. ROZEREM [Concomitant]
     Active Substance: RAMELTEON
  5. PAXIL [Concomitant]
     Active Substance: PAROXETINE HYDROCHLORIDE
  6. HYDROXYZINE [Concomitant]
     Active Substance: HYDROXYZINE HYDROCHLORIDE
  7. IBUPROFEN. [Concomitant]
     Active Substance: IBUPROFEN

REACTIONS (9)
  - Pain [None]
  - Flushing [None]
  - Infusion related reaction [None]
  - Erythema [None]
  - Product substitution issue [None]
  - Syncope [None]
  - Vomiting [None]
  - Nausea [None]
  - Heart rate decreased [None]

NARRATIVE: CASE EVENT DATE: 20201221
